FAERS Safety Report 10025019 (Version 2)
Quarter: 2014Q2

REPORT INFORMATION
  Report Type: Spontaneous
  Country: JP (occurrence: JP)
  Receive Date: 20140320
  Receipt Date: 20140520
  Transmission Date: 20141212
  Serious: Yes (Other)
  Sender: FDA-Public Use
  Company Number: JP-SA-2014SA033169

PATIENT
  Age: 14 Year
  Sex: Female
  Weight: 45.5 kg

DRUGS (9)
  1. FLUDARA [Suspect]
     Indication: BONE MARROW CONDITIONING REGIMEN
     Route: 065
     Dates: start: 20130702, end: 20130707
  2. THYMOGLOBULINE [Suspect]
     Indication: BONE MARROW CONDITIONING REGIMEN
     Route: 042
     Dates: start: 20130708, end: 20130708
  3. ALKERAN [Suspect]
     Indication: BONE MARROW CONDITIONING REGIMEN
     Route: 065
     Dates: start: 20130706, end: 20130707
  4. ONDANSETRON [Concomitant]
     Indication: PROPHYLAXIS
     Dates: start: 20130701, end: 20130708
  5. PENTAGIN [Concomitant]
     Indication: PAIN PROPHYLAXIS
     Dates: start: 20130701, end: 20130706
  6. FENTANYL [Concomitant]
     Indication: PAIN PROPHYLAXIS
     Dates: start: 20130706, end: 20130709
  7. OXYCODONE HYDROCHLORIDE [Concomitant]
     Indication: PAIN PROPHYLAXIS
     Dates: start: 20130709, end: 20130729
  8. FIRSTCIN [Concomitant]
     Indication: INFECTION PROPHYLAXIS
     Dates: start: 20130701, end: 20130709
  9. FUNGUARD [Concomitant]
     Indication: INFECTION PROPHYLAXIS
     Dates: start: 20130701, end: 20130713

REACTIONS (1)
  - Febrile neutropenia [Recovered/Resolved]
